FAERS Safety Report 16955471 (Version 1)
Quarter: 2019Q4

REPORT INFORMATION
  Report Type: Spontaneous
  Country: NL (occurrence: NL)
  Receive Date: 20191024
  Receipt Date: 20191024
  Transmission Date: 20200122
  Serious: Yes (Death)
  Sender: FDA-Public Use
  Company Number: NL-TEVA-2019-NL-1125822

PATIENT
  Age: 48 Year
  Sex: Male
  Weight: 75 kg

DRUGS (1)
  1. FLUOXETINE TABLET, 20 MG (MILLIGRAM) [Suspect]
     Active Substance: FLUOXETINE HYDROCHLORIDE
     Indication: DEPRESSION
     Dosage: 1DD1
     Dates: start: 20190808

REACTIONS (2)
  - Completed suicide [Fatal]
  - Hostility [Unknown]

NARRATIVE: CASE EVENT DATE: 20190908
